FAERS Safety Report 10206944 (Version 1)
Quarter: 2014Q2

REPORT INFORMATION
  Report Type: Spontaneous
  Country: CZ (occurrence: CZ)
  Receive Date: 20140530
  Receipt Date: 20140530
  Transmission Date: 20141212
  Serious: Yes (Hospitalization, Disabling)
  Sender: FDA-Public Use
  Company Number: CZ-B.I. PHARMACEUTICALS,INC./RIDGEFIELD-2014-BI-23605CZ

PATIENT
  Sex: Male

DRUGS (19)
  1. SPIRIVA [Suspect]
     Indication: CHRONIC OBSTRUCTIVE PULMONARY DISEASE
     Route: 065
  2. MILURIT [Concomitant]
     Route: 065
  3. ANP [Concomitant]
     Route: 065
  4. VALSACOR [Concomitant]
     Dosage: 80
     Route: 065
  5. GENSI [Concomitant]
     Dosage: 20
     Route: 065
  6. ACECOR [Concomitant]
     Dosage: DOSE PER APPLICATION: 400
     Route: 065
  7. FURON [Concomitant]
     Dosage: 40
     Route: 065
  8. GLUCOPHAGE [Concomitant]
     Dosage: 500
     Route: 065
  9. MOVALIS [Concomitant]
     Route: 065
  10. ATROVENT PP [Concomitant]
     Route: 065
  11. FORMANO [Concomitant]
     Route: 065
  12. AEROLIZER [Concomitant]
     Route: 065
  13. VENTOLIN [Concomitant]
     Route: 065
  14. SERTRIDE [Concomitant]
     Route: 065
  15. MODULITE [Concomitant]
     Indication: DYSPNOEA
     Route: 065
  16. COMBAIR [Concomitant]
     Indication: DYSPNOEA
     Route: 065
  17. TURBOHALER [Concomitant]
     Indication: FUNGAL INFECTION
     Route: 065
  18. BREEZHALER [Concomitant]
     Route: 065
  19. DAXAS [Concomitant]
     Route: 065

REACTIONS (1)
  - Chronic obstructive pulmonary disease [Recovered/Resolved]
